FAERS Safety Report 9215045 (Version 2)
Quarter: 2013Q4

REPORT INFORMATION
  Report Type: Spontaneous
  Country: US (occurrence: US)
  Receive Date: 20130405
  Receipt Date: 20131204
  Transmission Date: 20140711
  Serious: Yes (Other)
  Sender: FDA-Public Use
  Company Number: US-BAYER-2013-041504

PATIENT
  Age: 33 Year
  Sex: Female

DRUGS (3)
  1. YASMIN [Suspect]
     Dosage: UNK
     Dates: start: 200510, end: 20091205
  2. ACIPHEX [Concomitant]
     Dosage: UNK
     Route: 048
     Dates: start: 20090716
  3. OPTIVAR [Concomitant]
     Dosage: UNK
     Route: 047
     Dates: start: 20090325

REACTIONS (5)
  - Gallbladder disorder [None]
  - Cholecystitis chronic [None]
  - Injury [None]
  - Pain [None]
  - Pain [None]
